FAERS Safety Report 21214086 (Version 3)
Quarter: 2022Q4

REPORT INFORMATION
  Report Type: Report from Study
  Country: CA (occurrence: CA)
  Receive Date: 20220816
  Receipt Date: 20221220
  Transmission Date: 20230112
  Serious: Yes (Other)
  Sender: FDA-Public Use
  Company Number: CA-BIOGEN-2022BI01109318

PATIENT
  Sex: Female

DRUGS (2)
  1. TECFIDERA [Suspect]
     Active Substance: DIMETHYL FUMARATE
     Indication: Relapsing-remitting multiple sclerosis
     Route: 050
     Dates: start: 20210729
  2. TECFIDERA [Suspect]
     Active Substance: DIMETHYL FUMARATE
     Dosage: MAINTENANCE DOSE
     Route: 050
     Dates: start: 20210729, end: 20221214

REACTIONS (3)
  - Myocardial infarction [Recovered/Resolved]
  - Lymphocyte count decreased [Not Recovered/Not Resolved]
  - Herpes zoster [Not Recovered/Not Resolved]
